FAERS Safety Report 5144047-9 (Version None)
Quarter: 2006Q4

REPORT INFORMATION
  Report Type: 
  Country: None (occurrence: None)
  Receive Date: 20061030
  Receipt Date: 20061024
  Transmission Date: 20070319
  Serious: Yes (Hospitalization)
  Sender: FDA-Public Use
  Company Number: GXKR2006DE06644

PATIENT
  Age: 40 Year
  Sex: Female
  Weight: 92 kg

DRUGS (3)
  1. CAPTOHEXAL (NGX) (CAPTOPRIL) TABLET, 50MG [Suspect]
     Indication: HYPERTENSION
     Dosage: 50 MG, BID, ORAL
     Route: 048
     Dates: end: 20060927
  2. HYDROCHLOROTHIAZIDE [Concomitant]
  3. METOHEXAL (METOPROLOL TARTRATE) [Concomitant]

REACTIONS (6)
  - CHOLESTASIS [None]
  - COAGULOPATHY [None]
  - HEPATIC NECROSIS [None]
  - HEPATOTOXICITY [None]
  - LIVER DISORDER [None]
  - VARICES OESOPHAGEAL [None]
